FAERS Safety Report 5236384-4 (Version None)
Quarter: 2007Q1

REPORT INFORMATION
  Report Type: 
  Country: None (occurrence: None)
  Receive Date: 20070212
  Receipt Date: 20070129
  Transmission Date: 20070707
  Serious: Yes (Other)
  Sender: FDA-Public Use
  Company Number: DE-PFIZER INC-2007008792

PATIENT
  Age: 70 Year
  Sex: Female

DRUGS (4)
  1. ATORVASTATIN CALCIUM [Suspect]
     Dosage: DAILY DOSE:10MG
     Route: 048
  2. CONCOR [Concomitant]
  3. EBRANTIL [Concomitant]
  4. OLMESARTAN [Concomitant]
     Route: 048

REACTIONS (5)
  - LIPIDS INCREASED [None]
  - MUSCLE ATROPHY [None]
  - POLYNEUROPATHY [None]
  - RESTLESS LEGS SYNDROME [None]
  - SLEEP DISORDER [None]
